FAERS Safety Report 12158163 (Version 1)
Quarter: 2016Q1

REPORT INFORMATION
  Report Type: Spontaneous
  Country: US (occurrence: None)
  Receive Date: 20160307
  Receipt Date: 20160307
  Transmission Date: 20160526
  Serious: Yes (Life-Threatening, Hospitalization, Other)
  Sender: FDA-Public Use
  Company Number: None

PATIENT
  Age: 62 Year
  Sex: Male
  Weight: 52.16 kg

DRUGS (4)
  1. MODAFINIL. [Suspect]
     Active Substance: MODAFINIL
     Indication: SLEEP APNOEA SYNDROME
     Dosage: 1 PILL ONCE DAILY TAKEN BY MOUTH
     Route: 048
     Dates: end: 20160306
  2. VITAMINS [Concomitant]
     Active Substance: VITAMINS
  3. MODAFINIL. [Suspect]
     Active Substance: MODAFINIL
     Indication: DEPRESSED LEVEL OF CONSCIOUSNESS
     Dosage: 1 PILL ONCE DAILY TAKEN BY MOUTH
     Route: 048
     Dates: end: 20160306
  4. BLOOD PRESSURE MEDS [Concomitant]

REACTIONS (2)
  - Blood pressure increased [None]
  - Aortic dissection [None]

NARRATIVE: CASE EVENT DATE: 20151013
